FAERS Safety Report 24437280 (Version 1)
Quarter: 2024Q4

REPORT INFORMATION
  Report Type: Spontaneous
  Country: US (occurrence: None)
  Receive Date: 20241011
  Receipt Date: 20241011
  Transmission Date: 20250115
  Serious: No
  Sender: Public
  Company Number: None

PATIENT
  Age: 82 Year
  Sex: Male

DRUGS (1)
  1. LECANEMAB-IRMB [Suspect]
     Active Substance: LECANEMAB-IRMB
     Indication: Dementia Alzheimer^s type
     Dosage: OTHER FREQUENCY : ONCE;?
     Route: 042
     Dates: start: 20240611, end: 20240625

REACTIONS (3)
  - Hypoaesthesia [None]
  - Muscular weakness [None]
  - Infusion related reaction [None]

NARRATIVE: CASE EVENT DATE: 20240625
